FAERS Safety Report 18410772 (Version 1)
Quarter: 2020Q4

REPORT INFORMATION
  Report Type: Spontaneous
  Country: US (occurrence: US)
  Receive Date: 20201021
  Receipt Date: 20201021
  Transmission Date: 20210114
  Serious: Yes (Death)
  Sender: FDA-Public Use
  Company Number: None

PATIENT
  Age: 45 Year
  Sex: Male

DRUGS (8)
  1. PREDNISONE. [Concomitant]
     Active Substance: PREDNISONE
     Dates: start: 20200814
  2. XARELTO [Concomitant]
     Active Substance: RIVAROXABAN
     Dates: start: 20200818
  3. EUTHYROX [Concomitant]
     Active Substance: LEVOTHYROXINE SODIUM
     Dates: start: 20200114
  4. LASIX [Concomitant]
     Active Substance: FUROSEMIDE
     Dates: start: 20191022
  5. LEVOTHYROXINE. [Concomitant]
     Active Substance: LEVOTHYROXINE
     Dates: start: 20191111
  6. HUMIRA [Suspect]
     Active Substance: ADALIMUMAB
     Dates: start: 20200916, end: 20201013
  7. LIALDA [Concomitant]
     Active Substance: MESALAMINE
     Dates: start: 20200615
  8. LEXAPRO [Concomitant]
     Active Substance: ESCITALOPRAM OXALATE
     Dates: start: 20191022

REACTIONS (1)
  - Death [None]

NARRATIVE: CASE EVENT DATE: 20201013
